FAERS Safety Report 6357555-X (Version None)
Quarter: 2009Q3

REPORT INFORMATION
  Report Type: 
  Country: None (occurrence: None)
  Receive Date: 20090916
  Receipt Date: 20090904
  Transmission Date: 20100115
  Serious: Yes (Hospitalization, Other)
  Sender: FDA-Public Use
  Company Number: PHHY2009GB08925

PATIENT
  Sex: Female

DRUGS (6)
  1. CLOZARIL [Suspect]
     Indication: SCHIZOPHRENIA
     Dosage: 450 MG/DAY
     Route: 048
     Dates: start: 20081010
  2. CLOZARIL [Suspect]
     Dosage: 350 MG/DAY
  3. MIRTAZAPINE [Concomitant]
     Dosage: 45MG/DAY
     Route: 048
  4. ZOPICLONE [Concomitant]
     Dosage: 7.5 MG/DAY
     Route: 048
  5. DIAZEPAM [Concomitant]
     Dosage: 4 MG/DAY
     Route: 048
  6. AMISULPRIDE [Concomitant]

REACTIONS (9)
  - DEFORMITY [None]
  - DIZZINESS [None]
  - FALL [None]
  - FLUID INTAKE REDUCED [None]
  - HEART RATE INCREASED [None]
  - HYPOPHAGIA [None]
  - JOINT CREPITATION [None]
  - MENTAL DISORDER [None]
  - ORTHOSTATIC HYPOTENSION [None]
